FAERS Safety Report 6301395-4 (Version None)
Quarter: 2009Q3

REPORT INFORMATION
  Report Type: 
  Country: None (occurrence: None)
  Receive Date: 20090805
  Receipt Date: 20090805
  Transmission Date: 20100115
  Serious: Yes (Other)
  Sender: FDA-Public Use
  Company Number: None

PATIENT
  Age: 43 Year
  Sex: Female
  Weight: 50.8029 kg

DRUGS (2)
  1. ESTRADIOL [Suspect]
     Indication: HORMONE THERAPY
     Dosage: 1 PILL ONCE DAILY PO
     Route: 048
     Dates: start: 20090804, end: 20090804
  2. ESTRADIOL [Suspect]
     Indication: MENOPAUSE
     Dosage: 1 PILL ONCE DAILY PO
     Route: 048
     Dates: start: 20090804, end: 20090804

REACTIONS (1)
  - RASH PAPULAR [None]
